FAERS Safety Report 15075920 (Version 2)
Quarter: 2018Q3

REPORT INFORMATION
  Report Type: Spontaneous
  Country: US (occurrence: US)
  Receive Date: 20180627
  Receipt Date: 20180814
  Transmission Date: 20181010
  Serious: Yes (Other)
  Sender: FDA-Public Use
  Company Number: US-SA-2018SA166713

PATIENT
  Age: 59 Year
  Sex: Female
  Weight: 75.7 kg

DRUGS (7)
  1. NEOSAR [Concomitant]
     Active Substance: CYCLOPHOSPHAMIDE
  2. TAXOTERE [Suspect]
     Active Substance: DOCETAXEL
     Dosage: 138 MG, UNK
     Route: 042
     Dates: start: 20140210, end: 20140210
  3. ANASTROZOLE. [Concomitant]
     Active Substance: ANASTROZOLE
  4. TAXOTERE [Suspect]
     Active Substance: DOCETAXEL
     Indication: BREAST CANCER
     Dosage: 138 UNK, UNK
     Route: 042
     Dates: start: 20131209, end: 20131209
  5. LOVASTATIN. [Concomitant]
     Active Substance: LOVASTATIN
  6. ATENOLOL. [Concomitant]
     Active Substance: ATENOLOL
  7. HYDROCHLOROTHIAZIDE. [Concomitant]
     Active Substance: HYDROCHLOROTHIAZIDE

REACTIONS (1)
  - Alopecia [Recovering/Resolving]
